FAERS Safety Report 5611644-3 (Version None)
Quarter: 2008Q1

REPORT INFORMATION
  Report Type: 
  Country: None (occurrence: None)
  Receive Date: 20080201
  Receipt Date: 20080122
  Transmission Date: 20080703
  Serious: Yes (Hospitalization, Other)
  Sender: FDA-Public Use
  Company Number: US-PFIZER INC-2008009045

PATIENT
  Sex: Male
  Weight: 77.272 kg

DRUGS (4)
  1. CHANTIX [Suspect]
     Indication: SMOKING CESSATION THERAPY
  2. CHANTIX [Suspect]
  3. KLONOPIN [Concomitant]
  4. CYMBALTA [Concomitant]

REACTIONS (4)
  - BLOOD IRON DECREASED [None]
  - HYPERSENSITIVITY [None]
  - SELF INJURIOUS BEHAVIOUR [None]
  - SUICIDE ATTEMPT [None]
